FAERS Safety Report 12966302 (Version 1)
Quarter: 2016Q4

REPORT INFORMATION
  Report Type: Spontaneous
  Country: JP (occurrence: JP)
  Receive Date: 20161122
  Receipt Date: 20161122
  Transmission Date: 20170207
  Serious: Yes (Disabling)
  Sender: FDA-Public Use
  Company Number: JP-TEVA-2016-JP-002646J

PATIENT
  Age: 73 Year
  Sex: Female

DRUGS (1)
  1. CERCINE [Suspect]
     Active Substance: DIAZEPAM
     Indication: PROCEDURAL ANXIETY
     Dosage: 5 MILLIGRAM DAILY;
     Route: 042
     Dates: start: 20160928, end: 20160928

REACTIONS (1)
  - Injection site thrombosis [Recovered/Resolved with Sequelae]
